FAERS Safety Report 4645710-6 (Version None)
Quarter: 2005Q2

REPORT INFORMATION
  Report Type: 
  Country: None (occurrence: None)
  Receive Date: 20050427
  Receipt Date: 20050417
  Transmission Date: 20051028
  Serious: Yes (Other)
  Sender: FDA-Public Use
  Company Number: US-JNJFOC-20050404284

PATIENT
  Sex: Female
  Weight: 62.6 kg

DRUGS (3)
  1. REMICADE [Suspect]
     Indication: CROHN'S DISEASE
     Route: 042
  2. SYNTHROID [Concomitant]
  3. ACIPHEX [Concomitant]

REACTIONS (3)
  - ALOPECIA [None]
  - BLISTER [None]
  - RASH PUSTULAR [None]
